FAERS Safety Report 4733410-3 (Version None)
Quarter: 2005Q3

REPORT INFORMATION
  Report Type: 
  Country: None (occurrence: None)
  Receive Date: 20050803
  Receipt Date: 20050725
  Transmission Date: 20060218
  Serious: Yes (Other)
  Sender: FDA-Public Use
  Company Number: PHBS2005CA10760

PATIENT
  Sex: Female

DRUGS (1)
  1. DESFERAL [Suspect]
     Indication: MYELODYSPLASTIC SYNDROME
     Dates: start: 20050101, end: 20050201

REACTIONS (2)
  - AUDIOGRAM ABNORMAL [None]
  - OTOTOXICITY [None]
